FAERS Safety Report 4450338-7 (Version None)
Quarter: 2004Q3

REPORT INFORMATION
  Report Type: 
  Country: None (occurrence: None)
  Receive Date: 20040914
  Receipt Date: 20040906
  Transmission Date: 20050211
  Serious: Yes (Life-Threatening, Hospitalization)
  Sender: FDA-Public Use
  Company Number: 2004AP03378

PATIENT
  Age: 74 Year
  Sex: Female

DRUGS (9)
  1. IRESSA [Suspect]
     Indication: LUNG ADENOCARCINOMA
     Dosage: 250 MG DAILY PO
     Route: 048
     Dates: start: 20040113, end: 20040624
  2. IRESSA [Suspect]
     Indication: NON-SMALL CELL LUNG CANCER
     Dosage: 250 MG DAILY PO
     Route: 048
     Dates: start: 20040113, end: 20040624
  3. GASTER [Concomitant]
  4. ZYLORIC [Concomitant]
  5. FERROMIA [Concomitant]
  6. SELOKEN [Concomitant]
  7. ADALAT [Concomitant]
  8. CISPLATIN [Concomitant]
  9. IRINOTECAN [Concomitant]

REACTIONS (5)
  - BONE MARROW DEPRESSION [None]
  - GINGIVAL BLEEDING [None]
  - MOUTH HAEMORRHAGE [None]
  - PANCYTOPENIA [None]
  - PYREXIA [None]
